FAERS Safety Report 20502451 (Version 1)
Quarter: 2022Q1

REPORT INFORMATION
  Report Type: Spontaneous
  Country: US (occurrence: US)
  Receive Date: 20220222
  Receipt Date: 20220222
  Transmission Date: 20220423
  Serious: Yes (Other)
  Sender: FDA-Public Use
  Company Number: US-SUNOVION-2022SUN000526

PATIENT
  Sex: Female

DRUGS (2)
  1. BROVANA [Suspect]
     Active Substance: ARFORMOTEROL TARTRATE
     Indication: Chronic obstructive pulmonary disease
     Dosage: 15 ?G
     Route: 055
  2. PULMICORT TURBUHALER [Suspect]
     Active Substance: BUDESONIDE
     Dosage: UNK
     Route: 065

REACTIONS (4)
  - Lung neoplasm malignant [Not Recovered/Not Resolved]
  - COVID-19 [Unknown]
  - Chronic obstructive pulmonary disease [Not Recovered/Not Resolved]
  - Off label use [Unknown]
